FAERS Safety Report 14597911 (Version 1)
Quarter: 2018Q1

REPORT INFORMATION
  Report Type: Spontaneous
  Country: US (occurrence: US)
  Receive Date: 20180305
  Receipt Date: 20180305
  Transmission Date: 20180509
  Serious: No
  Sender: FDA-Public Use
  Company Number: US-PFIZER INC-2018089408

PATIENT
  Age: 49 Year
  Sex: Female

DRUGS (7)
  1. LANTUS [Concomitant]
     Active Substance: INSULIN GLARGINE
     Indication: TYPE 1 DIABETES MELLITUS
     Dosage: 30 IU, DAILY
  2. LYRICA [Suspect]
     Active Substance: PREGABALIN
     Dosage: 200 MG, 1X/DAY
     Route: 048
  3. LYRICA [Suspect]
     Active Substance: PREGABALIN
     Indication: DIABETIC NEUROPATHY
     Dosage: 200 MG, 2X/DAY
     Route: 048
  4. HUMALOG [Concomitant]
     Active Substance: INSULIN LISPRO
     Indication: TYPE 1 DIABETES MELLITUS
     Dosage: SLIDING SCALE AS NEEDED DAILY
  5. NORCO [Concomitant]
     Active Substance: ACETAMINOPHEN\HYDROCODONE BITARTRATE
     Indication: NEURALGIA
     Dosage: 1000 MG, 2-3 TIMES DAILY
     Route: 048
  6. SYNTHROID [Concomitant]
     Active Substance: LEVOTHYROXINE SODIUM
     Indication: THYROID DISORDER
     Dosage: UNK UNK, 1X/DAY
     Route: 048
  7. PREVACID [Concomitant]
     Active Substance: LANSOPRAZOLE
     Dosage: 15 MG, 1X/DAY
     Route: 048

REACTIONS (3)
  - Intentional product misuse [Unknown]
  - Drug withdrawal syndrome [Unknown]
  - Neuralgia [Unknown]

NARRATIVE: CASE EVENT DATE: 201802
